FAERS Safety Report 26048355 (Version 2)
Quarter: 2025Q4

REPORT INFORMATION
  Report Type: Spontaneous
  Country: JP (occurrence: JP)
  Receive Date: 20251114
  Receipt Date: 20251208
  Transmission Date: 20260119
  Serious: Yes (Other)
  Sender: MERCK SHARP & DOHME LLC
  Company Number: JP-009507513-2348600

PATIENT
  Age: 70 Year
  Sex: Female

DRUGS (2)
  1. KEYTRUDA [Suspect]
     Active Substance: PEMBROLIZUMAB
     Indication: Endometrial cancer metastatic
     Dosage: 200
     Dates: start: 20220906
  2. LENVIMA [Suspect]
     Active Substance: LENVATINIB
     Indication: Endometrial cancer metastatic
     Dosage: STARTING ON 10 (UNITS NOT PROVIDED); FLUCTUATED DOSAGE
     Dates: start: 20220906

REACTIONS (7)
  - Thrombocytopenia [Unknown]
  - Blood pressure increased [Unknown]
  - Malignant neoplasm progression [Unknown]
  - Hypothyroidism [Unknown]
  - Gait disturbance [Unknown]
  - Pain in extremity [Unknown]
  - Therapy partial responder [Unknown]
